FAERS Safety Report 4274363-4 (Version None)
Quarter: 2004Q1

REPORT INFORMATION
  Report Type: 
  Country: None (occurrence: None)
  Receive Date: 20040115
  Receipt Date: 20040106
  Transmission Date: 20041129
  Serious: Yes (Death)
  Sender: FDA-Public Use
  Company Number: 7035

PATIENT
  Age: 83 Year
  Sex: Male

DRUGS (15)
  1. AMIODARONE HCL [Suspect]
     Indication: VENTRICULAR TACHYCARDIA
     Dosage: 200 MG FREQ
     Dates: start: 20030521, end: 20031204
  2. ASPIRIN [Concomitant]
  3. CIMETIDINE HCL [Concomitant]
  4. CYCLIZINE [Concomitant]
  5. DIAMORPHINE [Concomitant]
  6. DIGOXIN [Concomitant]
  7. ERYTHROMYCIN [Concomitant]
  8. FRUSEMIDE [Concomitant]
  9. HALOPERIDOL [Concomitant]
  10. PREDNISOLONE [Concomitant]
  11. RAMIPRIL [Concomitant]
  12. SALBUTAMOL [Concomitant]
  13. SIMVASTATIN [Concomitant]
  14. SPIRONOLACTONE [Concomitant]
  15. TEMAZEPAM [Concomitant]

REACTIONS (3)
  - BRONCHIECTASIS [None]
  - DYSPNOEA [None]
  - PNEUMONITIS [None]
